FAERS Safety Report 8154144-1 (Version None)
Quarter: 2012Q1

REPORT INFORMATION
  Report Type: 
  Country: None (occurrence: None)
  Receive Date: 20120221
  Receipt Date: 20120215
  Transmission Date: 20120608
  Serious: No
  Sender: FDA-Public Use
  Company Number: US-PFIZER INC-2012041716

PATIENT
  Sex: Female
  Weight: 56.689 kg

DRUGS (2)
  1. MENTHOL [Suspect]
     Dosage: UNK
  2. NICOTROL [Suspect]
     Indication: SMOKING CESSATION THERAPY
     Dosage: UNK
     Route: 055
     Dates: start: 20120212, end: 20120201

REACTIONS (2)
  - DRUG HYPERSENSITIVITY [None]
  - RASH [None]
